FAERS Safety Report 6489683-2 (Version None)
Quarter: 2010Q1

REPORT INFORMATION
  Report Type: 
  Country: None (occurrence: None)
  Receive Date: 20091207
  Receipt Date: 20091112
  Transmission Date: 20100710
  Serious: Yes (Life-Threatening, Hospitalization)
  Sender: FDA-Public Use
  Company Number: DSA_42087_2009

PATIENT
  Age: 70 Year
  Sex: Female

DRUGS (6)
  1. DILTIAZEM HCL [Suspect]
     Indication: HYPERTENSION
     Dosage: (DF)
     Dates: start: 20090301, end: 20090301
  2. SEVOFLURANE [Suspect]
     Indication: INDUCTION OF ANAESTHESIA
     Dosage: (DF)
     Dates: start: 20090301, end: 20090301
  3. VECURONIUM BROMIDE [Suspect]
     Indication: INDUCTION OF ANAESTHESIA
     Dosage: (DF)
     Dates: start: 20090301, end: 20090301
  4. NICARDIPINE HYDROCHLORIDE [Concomitant]
  5. OXYGEN [Concomitant]
  6. NITROUS OXIDE [Concomitant]

REACTIONS (2)
  - BRADYCARDIA [None]
  - CARDIAC ARREST [None]
